FAERS Safety Report 19592888 (Version 1)
Quarter: 2021Q3

REPORT INFORMATION
  Report Type: Spontaneous
  Country: US (occurrence: US)
  Receive Date: 20210721
  Receipt Date: 20210721
  Transmission Date: 20211014
  Serious: Yes (Other)
  Sender: FDA-Public Use
  Company Number: None

PATIENT
  Age: 58 Year
  Sex: Female

DRUGS (1)
  1. AZATHIOPRINE 50MG TAB AMNE [Suspect]
     Active Substance: AZATHIOPRINE
     Dosage: OTHER
     Route: 048
     Dates: start: 201401, end: 201901

REACTIONS (1)
  - Skin cancer [None]

NARRATIVE: CASE EVENT DATE: 20190101
